FAERS Safety Report 8487889-4 (Version None)
Quarter: 2012Q3

REPORT INFORMATION
  Report Type: 
  Country: None (occurrence: None)
  Receive Date: 20120705
  Receipt Date: 20120626
  Transmission Date: 20120928
  Serious: Yes (Other)
  Sender: FDA-Public Use
  Company Number: US-US-EMD SERONO, INC.-7144165

PATIENT
  Sex: Female

DRUGS (3)
  1. BENICAR [Concomitant]
     Indication: BLOOD PRESSURE
  2. REBIF [Suspect]
     Indication: MULTIPLE SCLEROSIS
     Dates: start: 20120611, end: 20120625
  3. REBIF [Suspect]
     Route: 058
     Dates: start: 20120625

REACTIONS (1)
  - EYE HAEMORRHAGE [None]
